FAERS Safety Report 24752593 (Version 1)
Quarter: 2024Q4

REPORT INFORMATION
  Report Type: Spontaneous
  Country: ES (occurrence: ES)
  Receive Date: 20241219
  Receipt Date: 20241219
  Transmission Date: 20250115
  Serious: Yes (Hospitalization)
  Sender: JOHNSON AND JOHNSON
  Company Number: ES-BAYER-2024A173010

PATIENT
  Sex: Male

DRUGS (1)
  1. XARELTO [Suspect]
     Active Substance: RIVAROXABAN
     Indication: Thrombosis
     Dosage: 15 MG, QD
     Route: 048
     Dates: start: 20240801, end: 20241203

REACTIONS (6)
  - Cardiac amyloidosis [Unknown]
  - Muscle spasms [Unknown]
  - Peripheral swelling [Unknown]
  - Dry mouth [Unknown]
  - Adverse drug reaction [Unknown]
  - Pain in extremity [Unknown]
